FAERS Safety Report 9159482 (Version 2)
Quarter: 2013Q2

REPORT INFORMATION
  Report Type: Spontaneous
  Country: GB (occurrence: GB)
  Receive Date: 20130313
  Receipt Date: 20130429
  Transmission Date: 20140414
  Serious: Yes (Other)
  Sender: FDA-Public Use
  Company Number: PHFR2013GB001618

PATIENT
  Sex: Male
  Weight: 90 kg

DRUGS (7)
  1. CLOZARIL [Suspect]
     Dosage: UNK
     Route: 048
     Dates: start: 20010701
  2. CLOZARIL [Suspect]
     Dosage: 450 MG, UNK
  3. SULPIRIDE [Suspect]
     Dosage: 400 MG, QD
  4. SIMVASTATIN [Concomitant]
     Dosage: UNK
  5. ACE INHIBITORS [Concomitant]
     Dosage: UNK
  6. LANSOPRAZOLE [Concomitant]
     Dosage: UNK
  7. ASPIRIN [Concomitant]
     Dosage: UNK

REACTIONS (5)
  - Psychotic disorder [Unknown]
  - Lethargy [Recovered/Resolved]
  - Oropharyngeal pain [Recovered/Resolved]
  - Pyrexia [Recovered/Resolved]
  - White blood cell count decreased [Recovered/Resolved]
